FAERS Safety Report 8079378-6 (Version None)
Quarter: 2012Q1

REPORT INFORMATION
  Report Type: 
  Country: None (occurrence: None)
  Receive Date: 20120128
  Receipt Date: 20110822
  Transmission Date: 20120608
  Serious: No
  Sender: FDA-Public Use
  Company Number: US-ABBOTT-11P-163-0848540-00

PATIENT
  Age: 67 Year
  Sex: Female

DRUGS (3)
  1. CIPROFLOXACIN [Concomitant]
     Indication: SINUSITIS
  2. HUMIRA [Suspect]
  3. HUMIRA [Suspect]
     Indication: RHEUMATOID ARTHRITIS

REACTIONS (3)
  - DRUG EFFECT DECREASED [None]
  - SINUSITIS [None]
  - SWELLING [None]
